FAERS Safety Report 24216104 (Version 1)
Quarter: 2024Q3

REPORT INFORMATION
  Report Type: Spontaneous
  Country: US (occurrence: US)
  Receive Date: 20240816
  Receipt Date: 20240816
  Transmission Date: 20241016
  Serious: Yes (Other)
  Sender: GRIFOLS
  Company Number: US-IGSA-BIG0030179

PATIENT
  Age: 76 Year
  Sex: Male

DRUGS (4)
  1. GAMUNEX-C [Suspect]
     Active Substance: HUMAN IMMUNOGLOBULIN G
     Indication: Chronic inflammatory demyelinating polyradiculoneuropathy
     Dosage: 90 GRAM, Q.4WK.
     Route: 042
     Dates: start: 20230221
  2. GAMUNEX-C [Suspect]
     Active Substance: HUMAN IMMUNOGLOBULIN G
     Dosage: 90 GRAM, Q.4WK.
     Route: 042
  3. GAMUNEX-C [Suspect]
     Active Substance: HUMAN IMMUNOGLOBULIN G
     Dosage: 90 GRAM, Q.4WK.
     Route: 042
  4. GAMUNEX-C [Suspect]
     Active Substance: HUMAN IMMUNOGLOBULIN G
     Dosage: 90 GRAM, Q.4WK.
     Route: 042

REACTIONS (3)
  - Atrial fibrillation [Recovered/Resolved]
  - Arrhythmia [Unknown]
  - Fatigue [Unknown]

NARRATIVE: CASE EVENT DATE: 20240731
